APPROVED DRUG PRODUCT: EPHEDRINE SULFATE
Active Ingredient: EPHEDRINE SULFATE
Strength: 50MG/ML (50MG/ML)
Dosage Form/Route: SOLUTION;INTRAVENOUS
Application: A216129 | Product #001 | TE Code: AP
Applicant: MANKIND PHARMA LTD
Approved: Apr 14, 2022 | RLD: No | RS: No | Type: RX